FAERS Safety Report 7652982-2 (Version None)
Quarter: 2011Q3

REPORT INFORMATION
  Report Type: 
  Country: None (occurrence: None)
  Receive Date: 20110803
  Receipt Date: 20110801
  Transmission Date: 20111222
  Serious: Yes (Other)
  Sender: FDA-Public Use
  Company Number: US-PFIZER INC-2011175586

PATIENT
  Sex: Male
  Weight: 109 kg

DRUGS (1)
  1. VIAGRA [Suspect]
     Indication: ERECTILE DYSFUNCTION
     Dosage: 100 MG, AS NEEDED
     Route: 048
     Dates: end: 20110630

REACTIONS (6)
  - NASOPHARYNGITIS [None]
  - DRUG INEFFECTIVE [None]
  - TABLET PHYSICAL ISSUE [None]
  - PRODUCT COUNTERFEIT [None]
  - PNEUMONIA [None]
  - INCORRECT ROUTE OF DRUG ADMINISTRATION [None]
